FAERS Safety Report 9372511 (Version 2)
Quarter: 2013Q3

REPORT INFORMATION
  Report Type: Report from Study
  Country: DE (occurrence: DE)
  Receive Date: 20130627
  Receipt Date: 20130911
  Transmission Date: 20140515
  Serious: Yes (Death)
  Sender: FDA-Public Use
  Company Number: DE-ROCHE-1242289

PATIENT
  Age: 25 Year
  Sex: Female

DRUGS (7)
  1. BEVACIZUMAB [Suspect]
     Indication: BREAST CANCER METASTATIC
     Route: 042
     Dates: start: 20120822, end: 20130214
  2. PACLITAXEL [Suspect]
     Indication: BREAST CANCER METASTATIC
     Route: 042
     Dates: start: 20120822, end: 20130214
  3. PACLITAXEL [Suspect]
     Route: 042
     Dates: start: 20130515, end: 20130816
  4. RANITIDIN [Concomitant]
     Route: 042
     Dates: start: 20120822
  5. ONDANSETRON [Concomitant]
     Route: 042
     Dates: start: 20120822
  6. DEXAMETHASON [Concomitant]
     Route: 042
     Dates: start: 20120822
  7. DIMETINDEN [Concomitant]
     Route: 042
     Dates: start: 20120822

REACTIONS (1)
  - Impaired healing [Fatal]
